FAERS Safety Report 6274774-1 (Version None)
Quarter: 2009Q3

REPORT INFORMATION
  Report Type: 
  Country: None (occurrence: None)
  Receive Date: 20090717
  Receipt Date: 20090707
  Transmission Date: 20100115
  Serious: Yes (Other)
  Sender: FDA-Public Use
  Company Number: MC200900187

PATIENT
  Age: 82 Year
  Sex: Female
  Weight: 45.5 kg

DRUGS (1)
  1. ANGIOMAX [Suspect]
     Indication: PERCUTANEOUS CORONARY INTERVENTION
     Dosage: 0.75 MG/KG, BOLUS, INTRAVENOUS, 1.75 MG/KG
     Route: 042
     Dates: start: 20090504, end: 20090504

REACTIONS (2)
  - CATHETER THROMBOSIS [None]
  - REPERFUSION INJURY [None]
